FAERS Safety Report 9293237 (Version 1)
Quarter: 2013Q2

REPORT INFORMATION
  Report Type: Spontaneous
  Country: VE (occurrence: VE)
  Receive Date: 20130516
  Receipt Date: 20130516
  Transmission Date: 20140414
  Serious: Yes (Hospitalization)
  Sender: FDA-Public Use
  Company Number: VE-ELI_LILLY_AND_COMPANY-VE201210007459

PATIENT
  Age: 28 Year
  Sex: Female

DRUGS (8)
  1. HUMALOG 25% LISPRO, 75% NPL [Suspect]
     Indication: GESTATIONAL DIABETES
     Dosage: 10 U, EACH MORNING
     Route: 058
     Dates: start: 20121017, end: 20121213
  2. HUMALOG 25% LISPRO, 75% NPL [Suspect]
     Dosage: 10 U, EACH EVENING
     Route: 058
     Dates: start: 20121017
  3. ALDOMET [Concomitant]
  4. OMEGA 3 [Concomitant]
  5. PRENATAL VITAMINS                  /01549301/ [Concomitant]
  6. CARDIPIRINA [Concomitant]
  7. METFORMIN [Concomitant]
     Indication: GESTATIONAL DIABETES
  8. AMLODIPINE [Concomitant]
     Indication: PROPHYLAXIS

REACTIONS (3)
  - Premature labour [Recovered/Resolved]
  - Exposure during pregnancy [Recovered/Resolved]
  - Suppressed lactation [Recovered/Resolved]
